FAERS Safety Report 8113422-2 (Version None)
Quarter: 2012Q1

REPORT INFORMATION
  Report Type: 
  Country: None (occurrence: None)
  Receive Date: 20120203
  Receipt Date: 20120130
  Transmission Date: 20120608
  Serious: Yes (Death)
  Sender: FDA-Public Use
  Company Number: US-ELI_LILLY_AND_COMPANY-US201201009192

PATIENT
  Sex: Male

DRUGS (4)
  1. ADCIRCA [Suspect]
     Dosage: 20 MG, BID
     Dates: start: 20110101
  2. LASIX [Concomitant]
  3. COREG [Concomitant]
  4. TERAZOSIN HCL [Concomitant]

REACTIONS (2)
  - OFF LABEL USE [None]
  - DEATH [None]
